FAERS Safety Report 12682662 (Version 2)
Quarter: 2016Q3

REPORT INFORMATION
  Report Type: Spontaneous
  Country: US (occurrence: US)
  Receive Date: 20160825
  Receipt Date: 20160826
  Transmission Date: 20161109
  Serious: No
  Sender: FDA-Public Use
  Company Number: US-STRIDES ARCOLAB LIMITED-2016SP003969

PATIENT

DRUGS (1)
  1. ACARBOSE TABLETS, USP 50MG [Suspect]
     Active Substance: ACARBOSE
     Indication: PRODUCT USED FOR UNKNOWN INDICATION
     Dosage: 50 MG, 100 TABLETS/BOTTLE

REACTIONS (1)
  - Product label issue [Unknown]
